FAERS Safety Report 6883429-1 (Version None)
Quarter: 2010Q3

REPORT INFORMATION
  Report Type: 
  Country: None (occurrence: None)
  Receive Date: 20100727
  Receipt Date: 20100712
  Transmission Date: 20110219
  Serious: Yes (Other)
  Sender: FDA-Public Use
  Company Number: ACO_01006_2010

PATIENT
  Sex: Female
  Weight: 53.5244 kg

DRUGS (5)
  1. AMPYRA [Suspect]
     Indication: MULTIPLE SCLEROSIS
     Dosage: 10 MG, BID; ORAL
     Route: 048
     Dates: start: 20100527, end: 20100528
  2. COPAXONE [Concomitant]
  3. AMANTADINE HCL [Concomitant]
  4. BACLOFEN [Concomitant]
  5. VITAMIN TAB [Concomitant]

REACTIONS (2)
  - GRAND MAL CONVULSION [None]
  - LOSS OF CONSCIOUSNESS [None]
